FAERS Safety Report 7701640-4 (Version None)
Quarter: 2011Q3

REPORT INFORMATION
  Report Type: 
  Country: None (occurrence: None)
  Receive Date: 20110822
  Receipt Date: 20110818
  Transmission Date: 20111222
  Serious: Yes (Life-Threatening, Other)
  Sender: FDA-Public Use
  Company Number: ES-SANOFI-AVENTIS-2011SA044814

PATIENT
  Age: 58 Year
  Sex: Male

DRUGS (9)
  1. DOCETAXEL [Suspect]
     Indication: LUNG NEOPLASM
     Route: 042
     Dates: start: 20110609, end: 20110609
  2. DOCETAXEL [Suspect]
     Route: 042
     Dates: start: 20110609, end: 20110609
  3. TELMISARTAN [Concomitant]
  4. ONDANSETRON [Concomitant]
     Indication: PREMEDICATION
     Route: 042
  5. DOCETAXEL [Suspect]
     Route: 042
     Dates: start: 20110701, end: 20110701
  6. CISPLATIN [Concomitant]
     Indication: LUNG NEOPLASM
     Dates: start: 20110609, end: 20110609
  7. CISPLATIN [Concomitant]
     Dates: start: 20110701, end: 20110701
  8. DEXAMETHASONE [Concomitant]
     Indication: PREMEDICATION
     Route: 042
  9. DOCETAXEL [Suspect]
     Route: 042
     Dates: start: 20110701, end: 20110701

REACTIONS (7)
  - CARDIAC ARREST [None]
  - LOSS OF CONSCIOUSNESS [None]
  - PRODUCT QUALITY ISSUE [None]
  - BACK PAIN [None]
  - HYPOTENSION [None]
  - ERYTHEMA [None]
  - FOAMING AT MOUTH [None]
